FAERS Safety Report 5199980-9 (Version None)
Quarter: 2007Q1

REPORT INFORMATION
  Report Type: 
  Country: None (occurrence: None)
  Receive Date: 20070105
  Receipt Date: 20070102
  Transmission Date: 20070707
  Serious: Yes (Other)
  Sender: FDA-Public Use
  Company Number: 2006CG01803

PATIENT
  Age: 26436 Day
  Sex: Female
  Weight: 63 kg

DRUGS (6)
  1. CRESTOR [Suspect]
     Indication: HYPERCHOLESTEROLAEMIA
     Route: 048
     Dates: start: 20060624, end: 20061015
  2. NEXIUM [Concomitant]
     Route: 048
     Dates: start: 20060804, end: 20060811
  3. ASPIRIN [Concomitant]
     Indication: ARTERIOSCLEROSIS
     Dates: start: 20060728
  4. ACETAMINOPHEN W/ PROPOXYPHENE HCL [Concomitant]
     Indication: BACK PAIN
     Dosage: ONE TO FOUR TABLETS DAILY
     Route: 048
     Dates: start: 20060624, end: 20060630
  5. PIASCLEDINE [Concomitant]
     Indication: OSTEOARTHRITIS
     Dates: start: 20060804, end: 20061031
  6. VOLTARENE LP [Concomitant]
     Indication: BACK PAIN
     Dates: start: 20060804, end: 20060811

REACTIONS (2)
  - GINGIVITIS ULCERATIVE [None]
  - STOMATITIS [None]
